FAERS Safety Report 4737399-2 (Version None)
Quarter: 2005Q3

REPORT INFORMATION
  Report Type: 
  Country: None (occurrence: None)
  Receive Date: 20050809
  Receipt Date: 20050801
  Transmission Date: 20060218
  Serious: Yes (Other)
  Sender: FDA-Public Use
  Company Number: 2005UW11288

PATIENT
  Age: 85 Year
  Sex: Female

DRUGS (2)
  1. IRESSA [Suspect]
     Indication: LUNG NEOPLASM MALIGNANT
     Route: 048
     Dates: start: 20050101
  2. HIGH BLOOD PRESSURE MEDICATION [Concomitant]

REACTIONS (6)
  - ANOREXIA [None]
  - BEDRIDDEN [None]
  - HYPERSOMNIA [None]
  - INCOHERENT [None]
  - PRURITUS [None]
  - WEIGHT DECREASED [None]
